FAERS Safety Report 24535715 (Version 1)
Quarter: 2024Q4

REPORT INFORMATION
  Report Type: Spontaneous
  Country: US (occurrence: US)
  Receive Date: 20241022
  Receipt Date: 20241022
  Transmission Date: 20250115
  Serious: No
  Sender: PFIZER
  Company Number: US-PFIZER INC-202400280780

PATIENT
  Age: 65 Year
  Sex: Female

DRUGS (1)
  1. XELJANZ XR [Suspect]
     Active Substance: TOFACITINIB CITRATE
     Dosage: 11 MG, DAILY
     Route: 048

REACTIONS (6)
  - Pain [Unknown]
  - Swelling [Unknown]
  - Neck pain [Unknown]
  - Arthralgia [Unknown]
  - Joint stiffness [Unknown]
  - Skin ulcer [Unknown]

NARRATIVE: CASE EVENT DATE: 20240101
